FAERS Safety Report 7346673-5 (Version None)
Quarter: 2011Q1

REPORT INFORMATION
  Report Type: 
  Country: None (occurrence: None)
  Receive Date: 20110311
  Receipt Date: 20110305
  Transmission Date: 20110831
  Serious: Yes (Death, Other)
  Sender: FDA-Public Use
  Company Number: US-CUBIST-2011S1000154

PATIENT
  Age: 34 Year
  Sex: Male
  Weight: 70 kg

DRUGS (8)
  1. VANCOMYCIN [Concomitant]
     Indication: STAPHYLOCOCCAL BACTERAEMIA
     Route: 042
  2. METRONIDAZOLE [Concomitant]
     Indication: CLOSTRIDIUM DIFFICILE COLITIS
     Route: 065
  3. CUBICIN [Suspect]
     Indication: ENTEROCOCCAL BACTERAEMIA
     Route: 042
  4. CHEMOTHERAPEUTICS NOS [Concomitant]
     Indication: BURKITT'S LYMPHOMA STAGE IV
     Route: 065
  5. VANCOMYCIN [Concomitant]
     Indication: PNEUMONIA STAPHYLOCOCCAL
     Route: 042
  6. CUBICIN [Suspect]
     Indication: STAPHYLOCOCCAL BACTERAEMIA
     Route: 042
  7. LEVOFLOXACIN [Concomitant]
     Indication: ESCHERICHIA INFECTION
     Route: 042
  8. MICAFUNGIN [Concomitant]
     Indication: FUNGAEMIA
     Route: 042

REACTIONS (2)
  - BLOOD CREATINE PHOSPHOKINASE INCREASED [None]
  - FUNGAEMIA [None]
